FAERS Safety Report 8255798 (Version 3)
Quarter: 2013Q1

REPORT INFORMATION
  Report Type: Spontaneous
  Country: US (occurrence: US)
  Receive Date: 20111119
  Receipt Date: 20130211
  Transmission Date: 20140127
  Serious: Yes (Other)
  Sender: FDA-Public Use
  Company Number: US-ASTRAZENECA-2011SE68358

PATIENT
  Age: 52 Year
  Sex: Female

DRUGS (2)
  1. ATACAND [Suspect]
     Route: 048
  2. ATACAND HCT [Suspect]
     Dosage: 1 DF DAILY
     Route: 048

REACTIONS (4)
  - Foot fracture [Unknown]
  - Blood pressure increased [Unknown]
  - Hypertension [Unknown]
  - Drug dose omission [Unknown]
